FAERS Safety Report 8051109-5 (Version None)
Quarter: 2012Q1

REPORT INFORMATION
  Report Type: 
  Country: None (occurrence: None)
  Receive Date: 20120117
  Receipt Date: 20120112
  Transmission Date: 20120608
  Serious: Yes (Hospitalization)
  Sender: FDA-Public Use
  Company Number: PHHY2011AU107254

PATIENT
  Sex: Male

DRUGS (2)
  1. STALEVO 100 [Suspect]
     Dosage: (200/31.25/125) DOSE AT 8 AM, NOON AND 5 PM
     Route: 048
     Dates: start: 20110713
  2. LATANOPROST [Concomitant]
     Indication: GLAUCOMA
     Dosage: 1 DRP, (IN BOTH EYE)
     Dates: start: 20110407

REACTIONS (1)
  - FALL [None]
